FAERS Safety Report 6879609-1 (Version None)
Quarter: 2010Q3

REPORT INFORMATION
  Report Type: 
  Country: None (occurrence: None)
  Receive Date: 20100727
  Receipt Date: 20100720
  Transmission Date: 20110219
  Serious: Yes (Hospitalization, Other)
  Sender: FDA-Public Use
  Company Number: US-ABBOTT-10P-163-0652913-00

PATIENT
  Sex: Female
  Weight: 62.652 kg

DRUGS (5)
  1. HUMIRA [Suspect]
     Indication: RHEUMATOID ARTHRITIS
     Route: 058
     Dates: start: 20080101, end: 20100101
  2. HUMIRA [Suspect]
     Route: 058
     Dates: start: 20100101, end: 20100101
  3. HUMIRA [Suspect]
     Route: 058
     Dates: start: 20100501
  4. LEXAPRO [Concomitant]
     Indication: ANTIDEPRESSANT THERAPY
     Route: 048
  5. BONIVA [Concomitant]
     Indication: OSTEOPOROSIS
     Route: 048

REACTIONS (5)
  - ABDOMINAL PAIN [None]
  - APPENDICECTOMY [None]
  - DEVICE MALFUNCTION [None]
  - RHEUMATOID ARTHRITIS [None]
  - SPINAL FRACTURE [None]
